FAERS Safety Report 8129554-9 (Version None)
Quarter: 2012Q1

REPORT INFORMATION
  Report Type: 
  Country: None (occurrence: None)
  Receive Date: 20120210
  Receipt Date: 20120201
  Transmission Date: 20120608
  Serious: Yes (Death)
  Sender: FDA-Public Use
  Company Number: US-GLAXOSMITHKLINE-A0843103A

PATIENT
  Age: 86 Year
  Sex: Female

DRUGS (4)
  1. AZACYTIDINE [Concomitant]
     Indication: MYELODYSPLASTIC SYNDROME
  2. PLATELETS [Concomitant]
  3. PROMACTA [Suspect]
     Indication: THROMBOCYTOPENIA
     Dosage: 75MG PER DAY
     Dates: start: 20090917, end: 20091117
  4. COUMADIN [Concomitant]
     Indication: ATRIAL FIBRILLATION

REACTIONS (3)
  - DRUG INEFFECTIVE [None]
  - HAEMATOLOGICAL MALIGNANCY [None]
  - DISEASE PROGRESSION [None]
